FAERS Safety Report 5968447-X (Version None)
Quarter: 2008Q4

REPORT INFORMATION
  Report Type: 
  Country: None (occurrence: None)
  Receive Date: 20081121
  Receipt Date: 20081121
  Transmission Date: 20090506
  Serious: Yes (Other)
  Sender: FDA-Public Use
  Company Number: None

PATIENT
  Sex: Female
  Weight: 108.8633 kg

DRUGS (1)
  1. NEULASTA [Suspect]
     Indication: CHEMOTHERAPY
     Dosage: 6MG ONCE SQ
     Route: 058
     Dates: start: 20081117, end: 20081117

REACTIONS (6)
  - BLOOD PRESSURE DECREASED [None]
  - FEELING ABNORMAL [None]
  - PALLOR [None]
  - PRESYNCOPE [None]
  - RESPIRATORY RATE INCREASED [None]
  - SWELLING FACE [None]
